FAERS Safety Report 9454198 (Version 1)
Quarter: 2013Q3

REPORT INFORMATION
  Report Type: Spontaneous
  Country: US (occurrence: US)
  Receive Date: 20130812
  Receipt Date: 20130812
  Transmission Date: 20140515
  Serious: No
  Sender: FDA-Public Use
  Company Number: US-BAYER-2013-097326

PATIENT
  Sex: Female

DRUGS (3)
  1. BAYER GENUINE ASPIRIN ORIGINAL STRENGTH [Suspect]
     Indication: PYREXIA
     Dosage: UNK
  2. ALEVE CAPLET [Suspect]
     Indication: PYREXIA
     Dosage: UNK
  3. PARACETAMOL [Concomitant]

REACTIONS (2)
  - Hypersomnia [None]
  - Drug ineffective [None]
